FAERS Safety Report 10230452 (Version 2)
Quarter: 2014Q2

REPORT INFORMATION
  Report Type: Spontaneous
  Country: US (occurrence: US)
  Receive Date: 20140611
  Receipt Date: 20140611
  Transmission Date: 20141212
  Serious: Yes (Other)
  Sender: FDA-Public Use
  Company Number: US-INCYTE CORPORATION-2014IN000330

PATIENT
  Age: 75 Year
  Sex: Male
  Weight: 77.1 kg

DRUGS (2)
  1. JAKAFI [Suspect]
     Indication: SPLENOMEGALY
     Dosage: 20 MG, BID
     Route: 048
     Dates: start: 20130904, end: 20140224
  2. JAKAFI [Suspect]
     Indication: MYELOFIBROSIS
     Dosage: 10 MG, BID
     Route: 048
     Dates: start: 201402

REACTIONS (3)
  - Blood product transfusion dependent [Unknown]
  - Haemoglobin decreased [Recovering/Resolving]
  - Dyspnoea [Unknown]
